FAERS Safety Report 14392377 (Version 3)
Quarter: 2018Q1

REPORT INFORMATION
  Report Type: Report from Study
  Country: IT (occurrence: IT)
  Receive Date: 20180116
  Receipt Date: 20180309
  Transmission Date: 20180509
  Serious: Yes (Other)
  Sender: FDA-Public Use
  Company Number: IT-EISAI MEDICAL RESEARCH-EC-2018-035051

PATIENT
  Age: 17 Year
  Sex: Female
  Weight: 50 kg

DRUGS (10)
  1. TWICE [Concomitant]
     Dates: start: 20180111
  2. LENVATINIB [Suspect]
     Active Substance: LENVATINIB
     Route: 048
     Dates: start: 20180118, end: 20180201
  3. ORAMORPH [Concomitant]
     Active Substance: MORPHINE SULFATE
  4. LYRICA [Concomitant]
     Active Substance: PREGABALIN
  5. PORTOLAC [Concomitant]
     Active Substance: LACTITOL
  6. PANTORC [Concomitant]
     Active Substance: PANTOPRAZOLE SODIUM
     Dates: start: 20180111
  7. MUCOSYTE [Concomitant]
  8. LENVATINIB [Suspect]
     Active Substance: LENVATINIB
     Indication: OSTEOSARCOMA
     Route: 048
     Dates: start: 20171206, end: 20171208
  9. LENVATINIB [Suspect]
     Active Substance: LENVATINIB
     Route: 048
     Dates: start: 20171215, end: 20180110
  10. DEXAMETHASONE. [Concomitant]
     Active Substance: DEXAMETHASONE

REACTIONS (1)
  - Sinus bradycardia [Recovered/Resolved]

NARRATIVE: CASE EVENT DATE: 20180111
